FAERS Safety Report 6664894-1 (Version None)
Quarter: 2010Q2

REPORT INFORMATION
  Report Type: 
  Country: None (occurrence: None)
  Receive Date: 20100402
  Receipt Date: 20100325
  Transmission Date: 20101027
  Serious: No
  Sender: FDA-Public Use
  Company Number: US-BIOGENIDEC-2010BI008187

PATIENT
  Sex: Female

DRUGS (2)
  1. TYSABRI [Suspect]
     Indication: MULTIPLE SCLEROSIS
     Route: 042
     Dates: start: 20090616
  2. REBIF [Concomitant]
     Indication: MULTIPLE SCLEROSIS

REACTIONS (11)
  - BACK INJURY [None]
  - CYSTITIS [None]
  - DERMATITIS BULLOUS [None]
  - DYSPNOEA [None]
  - FALL [None]
  - INFECTION [None]
  - INFLUENZA [None]
  - MULTIPLE SCLEROSIS [None]
  - OEDEMA PERIPHERAL [None]
  - PRODUCTIVE COUGH [None]
  - VISUAL IMPAIRMENT [None]
